FAERS Safety Report 6058939-X (Version None)
Quarter: 2009Q1

REPORT INFORMATION
  Report Type: 
  Country: None (occurrence: None)
  Receive Date: 20090128
  Receipt Date: 20090128
  Transmission Date: 20090719
  Serious: Yes (Other)
  Sender: FDA-Public Use
  Company Number: None

PATIENT
  Sex: Female
  Weight: 53.0709 kg

DRUGS (1)
  1. LASIX [Suspect]
     Indication: FLUID RETENTION
     Dosage: 1 PILL TWICE DAILY PO
     Route: 048
     Dates: start: 20090114, end: 20090116

REACTIONS (5)
  - BURNING SENSATION [None]
  - HYPOAESTHESIA [None]
  - HYPOAESTHESIA FACIAL [None]
  - INSOMNIA [None]
  - PAIN IN EXTREMITY [None]
